FAERS Safety Report 6626315-4 (Version None)
Quarter: 2010Q1

REPORT INFORMATION
  Report Type: 
  Country: None (occurrence: None)
  Receive Date: 20100309
  Receipt Date: 20100309
  Transmission Date: 20100710
  Serious: Yes (Other)
  Sender: FDA-Public Use
  Company Number: None

PATIENT
  Age: 37 Year
  Sex: Female
  Weight: 52.1637 kg

DRUGS (2)
  1. METOCLOPRAMIDE [Suspect]
     Indication: ABDOMINAL PAIN UPPER
     Dosage: 10MG 3 TIMES DAILY PO
     Route: 048
     Dates: start: 20100211, end: 20100226
  2. METOCLOPRAMIDE [Suspect]
     Indication: IRRITABLE BOWEL SYNDROME
     Dosage: 10MG 3 TIMES DAILY PO
     Route: 048
     Dates: start: 20100211, end: 20100226

REACTIONS (2)
  - EAR DISCOMFORT [None]
  - MUSCLE TIGHTNESS [None]
